FAERS Safety Report 5627052-5 (Version None)
Quarter: 2008Q1

REPORT INFORMATION
  Report Type: 
  Country: None (occurrence: None)
  Receive Date: 20080116
  Receipt Date: 20071030
  Transmission Date: 20080703
  Serious: Yes (Hospitalization)
  Sender: FDA-Public Use
  Company Number: 2007SP001547

PATIENT
  Age: 85 Year
  Sex: Female
  Weight: 47.1741 kg

DRUGS (7)
  1. LUNESTA [Suspect]
     Dosage: 0.5 MG;ORAL ; 1 MG;ORAL
     Route: 048
     Dates: start: 20060801, end: 20071001
  2. SEROQUEL [Concomitant]
  3. PROZAC [Concomitant]
  4. PREVACID [Concomitant]
  5. XANAX [Concomitant]
  6. STOOL SOFTENER [Concomitant]
  7. TYLENOL (CAPLET) [Concomitant]

REACTIONS (6)
  - CHEST PAIN [None]
  - DEPRESSION [None]
  - GASTROOESOPHAGEAL REFLUX DISEASE [None]
  - HELICOBACTER GASTRITIS [None]
  - HYPERSOMNIA [None]
  - VISUAL DISTURBANCE [None]
